FAERS Safety Report 11115433 (Version 1)
Quarter: 2015Q2

REPORT INFORMATION
  Report Type: Spontaneous
  Country: US (occurrence: None)
  Receive Date: 20150504
  Receipt Date: 20150504
  Transmission Date: 20150821
  Serious: Yes (Other)
  Sender: FDA-Public Use
  Company Number: 1452207

PATIENT
  Age: 12 Year
  Sex: Female

DRUGS (5)
  1. BEVACIZUMAB (BEVACIZUMAB) [Suspect]
     Active Substance: BEVACIZUMAB
     Indication: ANGIOSARCOMA METASTATIC
  2. CARBOPLATIN (CARBOPLATIN) [Suspect]
     Active Substance: CARBOPLATIN
     Indication: ANGIOSARCOMA METASTATIC
  3. VINCRISTINE (VINCRISTINE) [Suspect]
     Active Substance: VINCRISTINE
     Indication: ANGIOSARCOMA METASTATIC
  4. ETOPOSIDE (ETOPOSIDE) [Suspect]
     Active Substance: ETOPOSIDE
     Indication: ANGIOSARCOMA METASTATIC
  5. INTERFERON ALFA-2B (INTERFERON ALFA-2B) [Suspect]
     Active Substance: INTERFERON ALFA-2B
     Indication: ANGIOSARCOMA METASTATIC

REACTIONS (1)
  - Thrombocytopenia [None]
